FAERS Safety Report 13423602 (Version 2)
Quarter: 2017Q2

REPORT INFORMATION
  Report Type: Spontaneous
  Country: JP (occurrence: JP)
  Receive Date: 20170410
  Receipt Date: 20170428
  Transmission Date: 20170830
  Serious: Yes (Death, Hospitalization)
  Sender: FDA-Public Use
  Company Number: JP-ELI_LILLY_AND_COMPANY-JP201704000104

PATIENT
  Age: 30 Year
  Sex: Female

DRUGS (5)
  1. CONTOMIN                           /00011902/ [Concomitant]
     Active Substance: CHLORPROMAZINE HYDROCHLORIDE
  2. LEXAPRO [Concomitant]
     Active Substance: ESCITALOPRAM OXALATE
  3. TRULICITY [Suspect]
     Active Substance: DULAGLUTIDE
     Indication: DIABETES MELLITUS
     Route: 058
  4. RISPERDAL [Concomitant]
     Active Substance: RISPERIDONE
  5. HOKUNALIN                          /00654901/ [Suspect]
     Active Substance: TULOBUTEROL
     Indication: PRODUCT USED FOR UNKNOWN INDICATION
     Route: 062

REACTIONS (2)
  - Asthma [Unknown]
  - Respiratory failure [Fatal]

NARRATIVE: CASE EVENT DATE: 201703
